FAERS Safety Report 18922494 (Version 1)
Quarter: 2021Q1

REPORT INFORMATION
  Report Type: Spontaneous
  Country: US (occurrence: US)
  Receive Date: 20210222
  Receipt Date: 20210222
  Transmission Date: 20210420
  Serious: Yes (Disabling)
  Sender: FDA-Public Use
  Company Number: None

PATIENT
  Age: 28 Year
  Sex: Female
  Weight: 72 kg

DRUGS (3)
  1. XIIDRA [Suspect]
     Active Substance: LIFITEGRAST
     Indication: DRY EYE
     Dosage: ?          QUANTITY:1 DROP(S);?
     Route: 001
     Dates: start: 20210105, end: 20210211
  2. FISH OIL [Concomitant]
     Active Substance: FISH OIL
  3. NORTREL [Concomitant]
     Active Substance: ETHINYL ESTRADIOL\NORETHINDRONE

REACTIONS (6)
  - Eye irritation [None]
  - Lacrimation increased [None]
  - Dacryostenosis acquired [None]
  - Upper-airway cough syndrome [None]
  - Eye pain [None]
  - Eye swelling [None]

NARRATIVE: CASE EVENT DATE: 20210211
